FAERS Safety Report 9105203 (Version 1)
Quarter: 2013Q1

REPORT INFORMATION
  Report Type: Spontaneous
  Country: FR (occurrence: FR)
  Receive Date: 20130219
  Receipt Date: 20130219
  Transmission Date: 20140127
  Serious: Yes (Other)
  Sender: FDA-Public Use
  Company Number: FR-UCBSA-078307

PATIENT
  Sex: Female

DRUGS (1)
  1. KEPPRA [Suspect]
     Route: 048

REACTIONS (1)
  - Drug dependence [Unknown]
